FAERS Safety Report 23245723 (Version 2)
Quarter: 2024Q3

REPORT INFORMATION
  Report Type: Spontaneous
  Country: AU (occurrence: AU)
  Receive Date: 20231130
  Receipt Date: 20240815
  Transmission Date: 20241016
  Serious: Yes (Hospitalization)
  Sender: MERCK
  Company Number: AU-009507513-2311AUS009429

PATIENT
  Age: 75 Year
  Sex: Male

DRUGS (5)
  1. ONCOTICE [Suspect]
     Active Substance: BACILLUS CALMETTE-GUERIN SUBSTRAIN TICE LIVE ANTIGEN
     Indication: Bladder cancer
     Dosage: UNK
     Dates: start: 2023
  2. ONCOTICE [Suspect]
     Active Substance: BACILLUS CALMETTE-GUERIN SUBSTRAIN TICE LIVE ANTIGEN
     Dosage: UNK
     Dates: start: 2023
  3. ISONIAZID [Suspect]
     Active Substance: ISONIAZID
     Dosage: UNK
     Dates: start: 20231122
  4. RIFAMPIN [Suspect]
     Active Substance: RIFAMPIN
     Dosage: UNK
     Dates: start: 20231122
  5. ETHAMBUTOL [Suspect]
     Active Substance: ETHAMBUTOL HYDROCHLORIDE
     Dosage: UNK
     Dates: start: 20231122

REACTIONS (3)
  - Adverse drug reaction [Unknown]
  - Adverse drug reaction [Unknown]
  - Mycobacterium test positive [Unknown]

NARRATIVE: CASE EVENT DATE: 20230101
